FAERS Safety Report 24915256 (Version 1)
Quarter: 2025Q1

REPORT INFORMATION
  Report Type: Spontaneous
  Country: JP (occurrence: JP)
  Receive Date: 20250203
  Receipt Date: 20250203
  Transmission Date: 20250408
  Serious: Yes (Other)
  Sender: BRISTOL-MYERS SQUIBB COMPANY
  Company Number: JP-BRISTOL-MYERS SQUIBB COMPANY-2025-014293

PATIENT
  Age: 7 Decade
  Sex: Male

DRUGS (1)
  1. REBLOZYL [Suspect]
     Active Substance: LUSPATERCEPT-AAMT
     Indication: Anaemia of malignant disease
     Dosage: DOSE : 1 MG/KG;     FREQ : ONCE/ 3 WEEKS
     Route: 058

REACTIONS (2)
  - Hypersensitivity pneumonitis [Recovered/Resolved]
  - Ascites [Recovered/Resolved]
